FAERS Safety Report 10098934 (Version 1)
Quarter: 2014Q2

REPORT INFORMATION
  Report Type: Spontaneous
  Country: TW (occurrence: TW)
  Receive Date: 20140423
  Receipt Date: 20140423
  Transmission Date: 20141212
  Serious: Yes (Hospitalization)
  Sender: FDA-Public Use
  Company Number: TW-SA-2014SA052365

PATIENT
  Age: 77 Year
  Sex: Male

DRUGS (2)
  1. LEUPRORELIN ACETATE [Suspect]
     Indication: PROSTATE CANCER
     Route: 058
  2. ALL OTHER THERAPEUTIC PRODUCTS [Concomitant]

REACTIONS (13)
  - Pituitary haemorrhage [Recovering/Resolving]
  - Headache [Recovering/Resolving]
  - Vomiting [Recovering/Resolving]
  - Pain [Recovering/Resolving]
  - Cranial nerve paralysis [Recovering/Resolving]
  - Eyelid ptosis [Recovering/Resolving]
  - Eye movement disorder [Recovering/Resolving]
  - Vision blurred [Recovering/Resolving]
  - Hyponatraemia [Recovering/Resolving]
  - Blood follicle stimulating hormone increased [Recovering/Resolving]
  - Pituitary infarction [Recovering/Resolving]
  - Laceration [Unknown]
  - Upper gastrointestinal haemorrhage [Unknown]
